FAERS Safety Report 6068048-1 (Version None)
Quarter: 2009Q1

REPORT INFORMATION
  Report Type: 
  Country: None (occurrence: None)
  Receive Date: 20090206
  Receipt Date: 20090202
  Transmission Date: 20090719
  Serious: Yes (Hospitalization, Other)
  Sender: FDA-Public Use
  Company Number: US-BAYER-200912233NA

PATIENT
  Age: 20 Year
  Sex: Female
  Weight: 54 kg

DRUGS (1)
  1. YAZ [Suspect]
     Indication: ACNE
     Dosage: AS USED: 1 DF
     Route: 048
     Dates: start: 20080901, end: 20090105

REACTIONS (1)
  - INTRACRANIAL VENOUS SINUS THROMBOSIS [None]
